FAERS Safety Report 23214445 (Version 1)
Quarter: 2023Q4

REPORT INFORMATION
  Report Type: Spontaneous
  Country: SE (occurrence: SE)
  Receive Date: 20231121
  Receipt Date: 20231121
  Transmission Date: 20240109
  Serious: Yes (Death, Hospitalization)
  Sender: FDA-Public Use
  Company Number: SE-JNJFOC-20230867775

PATIENT
  Age: 63 Year
  Sex: Female
  Weight: 96 kg

DRUGS (5)
  1. DEXAMETHASONE [Suspect]
     Active Substance: DEXAMETHASONE
     Indication: Plasma cell myeloma refractory
     Route: 065
     Dates: start: 20230830
  2. BORTEZOMIB [Suspect]
     Active Substance: BORTEZOMIB
     Indication: Plasma cell myeloma refractory
     Route: 065
     Dates: start: 20230830
  3. TALQUETAMAB [Suspect]
     Active Substance: TALQUETAMAB
     Indication: Plasma cell myeloma refractory
     Dosage: FULL DOSE, LAST DOSE WAS ON 21/AUG/2023
     Route: 065
     Dates: start: 20230512
  4. TALQUETAMAB [Suspect]
     Active Substance: TALQUETAMAB
     Route: 065
     Dates: start: 20230503
  5. PANOBINOSTAT [Suspect]
     Active Substance: PANOBINOSTAT
     Indication: Plasma cell myeloma refractory
     Route: 065
     Dates: start: 20230830

REACTIONS (3)
  - Plasma cell myeloma [Fatal]
  - Thrombocytopenia [Unknown]
  - Hypercalcaemia [Unknown]

NARRATIVE: CASE EVENT DATE: 20230828
